FAERS Safety Report 19064103 (Version 1)
Quarter: 2021Q1

REPORT INFORMATION
  Report Type: Spontaneous
  Country: CH (occurrence: CH)
  Receive Date: 20210326
  Receipt Date: 20210326
  Transmission Date: 20210420
  Serious: Yes (Death)
  Sender: FDA-Public Use
  Company Number: CH-EMD SERONO-9226917

PATIENT
  Sex: Male

DRUGS (1)
  1. AVELUMAB [Suspect]
     Active Substance: AVELUMAB
     Indication: TRANSITIONAL CELL CARCINOMA
     Dates: start: 202007, end: 202007

REACTIONS (6)
  - Off label use [Unknown]
  - Loss of consciousness [Fatal]
  - Azotaemia [Fatal]
  - Cerebrovascular accident [Fatal]
  - Ileus [Fatal]
  - Disease progression [Fatal]

NARRATIVE: CASE EVENT DATE: 202009
